FAERS Safety Report 7272261-5 (Version None)
Quarter: 2011Q1

REPORT INFORMATION
  Report Type: 
  Country: None (occurrence: None)
  Receive Date: 20110203
  Receipt Date: 20110124
  Transmission Date: 20110831
  Serious: Yes (Hospitalization)
  Sender: FDA-Public Use
  Company Number: PHHY2011JP06089

PATIENT
  Sex: Female

DRUGS (2)
  1. GLEEVEC [Suspect]
     Indication: CHRONIC MYELOID LEUKAEMIA
     Dosage: 300 MG, QD
     Route: 048
     Dates: start: 20060101
  2. LASIX [Suspect]
     Dosage: UNK

REACTIONS (4)
  - WEIGHT DECREASED [None]
  - ANAL EROSION [None]
  - EATING DISORDER [None]
  - STOMATITIS [None]
